FAERS Safety Report 6431130-0 (Version None)
Quarter: 2009Q4

REPORT INFORMATION
  Report Type: 
  Country: None (occurrence: None)
  Receive Date: 20091105
  Receipt Date: 20091105
  Transmission Date: 20100525
  Serious: No
  Sender: FDA-Public Use
  Company Number: None

PATIENT
  Age: 59 Year
  Sex: Male
  Weight: 82 kg

DRUGS (1)
  1. ALLOPURINOL [Suspect]
     Indication: GOUT
     Dosage: 100 MG EVERY DAY PO
     Route: 048
     Dates: start: 20080508, end: 20080515

REACTIONS (3)
  - PRURITUS [None]
  - RASH [None]
  - URTICARIA [None]
